FAERS Safety Report 8395212-9 (Version None)
Quarter: 2012Q2

REPORT INFORMATION
  Report Type: 
  Country: None (occurrence: None)
  Receive Date: 20120530
  Receipt Date: 20120522
  Transmission Date: 20120825
  Serious: Yes (Hospitalization)
  Sender: FDA-Public Use
  Company Number: FR-VERTEX PHARMACEUTICALS INC.-000000000000000622

PATIENT
  Sex: Male

DRUGS (9)
  1. ALDACTONE [Concomitant]
     Indication: OEDEMA
  2. TELAPREVIR [Suspect]
     Indication: HEPATITIS C
     Dosage: DOSAGE FORM: TABLET
     Route: 048
     Dates: start: 20110819, end: 20111021
  3. NOVORAPID [Concomitant]
     Indication: DIABETES MELLITUS
  4. COPEGUS [Concomitant]
     Indication: HEPATITIS C
     Dosage: DOSAGE FORM: TABLET
     Route: 048
     Dates: start: 20110819, end: 20111021
  5. LASIX [Concomitant]
     Indication: OEDEMA
  6. PEGASYS [Concomitant]
     Indication: HEPATITIS C
     Dosage: DOSAGE FORM: INJECTION
     Route: 058
     Dates: start: 20110819, end: 20111021
  7. CEFIXIME [Concomitant]
     Indication: URINARY TRACT INFECTION
  8. POTASSIUM CHLORIDE [Concomitant]
     Indication: HYPOKALAEMIA
  9. LANTUS [Concomitant]
     Indication: DIABETES MELLITUS

REACTIONS (4)
  - PRURIGO [None]
  - RASH ERYTHEMATOUS [None]
  - THROMBOCYTOPENIA [None]
  - ANAEMIA [None]
